FAERS Safety Report 9521693 (Version 2)
Quarter: 2013Q4

REPORT INFORMATION
  Report Type: Report from Study
  Country: BR (occurrence: BR)
  Receive Date: 20130913
  Receipt Date: 20131114
  Transmission Date: 20140711
  Serious: Yes (Death, Hospitalization, Other)
  Sender: FDA-Public Use
  Company Number: PHHY2013BR100831

PATIENT
  Sex: Female

DRUGS (1)
  1. EXELON PATCH [Suspect]
     Indication: SENILE DEMENTIA
     Dosage: 1 DF, QD
     Route: 062

REACTIONS (3)
  - Death [Fatal]
  - Pneumonia [Unknown]
  - Urinary tract infection [Unknown]
